FAERS Safety Report 15993724 (Version 1)
Quarter: 2019Q1

REPORT INFORMATION
  Report Type: Spontaneous
  Country: DE (occurrence: DE)
  Receive Date: 20190222
  Receipt Date: 20190222
  Transmission Date: 20190418
  Serious: Yes (Other)
  Sender: FDA-Public Use
  Company Number: DE-SA-2019SA045024

PATIENT
  Sex: Male
  Weight: 78 kg

DRUGS (1)
  1. CLEXANE [Suspect]
     Active Substance: ENOXAPARIN SODIUM
     Dosage: 40 MG, QD
     Route: 065
     Dates: start: 20190103, end: 20190212

REACTIONS (2)
  - Pericardial effusion [Unknown]
  - Fatigue [Unknown]

NARRATIVE: CASE EVENT DATE: 20190107
